FAERS Safety Report 6186614-X (Version None)
Quarter: 2009Q2

REPORT INFORMATION
  Report Type: 
  Country: None (occurrence: None)
  Receive Date: 20090512
  Receipt Date: 20090505
  Transmission Date: 20091009
  Serious: Yes (Death, Hospitalization)
  Sender: FDA-Public Use
  Company Number: FR-PFIZER INC-2007007135

PATIENT
  Age: 20 Year

DRUGS (18)
  1. VORICONAZOLE [Suspect]
     Indication: PROPHYLAXIS
     Route: 042
     Dates: start: 20061201, end: 20061202
  2. VORICONAZOLE [Suspect]
     Route: 048
     Dates: start: 20061208, end: 20061208
  3. VORICONAZOLE [Suspect]
     Dosage: 200 MG, 2X/DAY
     Route: 048
     Dates: start: 20061209, end: 20061213
  4. VORICONAZOLE [Suspect]
     Route: 048
     Dates: start: 20061214, end: 20061227
  5. LEXOMIL [Concomitant]
     Route: 048
     Dates: start: 20061214
  6. GAVISCON [Concomitant]
     Route: 048
     Dates: start: 20061123
  7. HEPARIN [Concomitant]
     Route: 042
     Dates: start: 20061126, end: 20061223
  8. ONDANSETRON [Concomitant]
     Route: 042
     Dates: start: 20061126, end: 20061217
  9. TACROLIMUS [Concomitant]
     Route: 048
     Dates: start: 20061201, end: 20061226
  10. OMEPRAZOLE [Concomitant]
     Route: 042
     Dates: start: 20061204, end: 20061221
  11. ACYCLOVIR SODIUM [Concomitant]
     Route: 042
     Dates: start: 20061208, end: 20061223
  12. CEFEPIME [Concomitant]
     Route: 042
     Dates: start: 20061209, end: 20061223
  13. MORPHINE [Concomitant]
     Route: 042
     Dates: start: 20061210, end: 20061222
  14. ECONAZOLE NITRATE [Concomitant]
     Dates: start: 20061212, end: 20061221
  15. BROMAZEPAM [Concomitant]
     Route: 048
     Dates: start: 20061213, end: 20070127
  16. NIFUROXAZIDE [Concomitant]
     Route: 042
     Dates: start: 20061124, end: 20061223
  17. TRAMADOL HCL [Concomitant]
     Route: 042
     Dates: start: 20061208, end: 20061215
  18. ORACILLINE [Concomitant]
     Route: 048
     Dates: start: 20061223, end: 20070117

REACTIONS (1)
  - LEUKAEMIA RECURRENT [None]
